FAERS Safety Report 5148157-1 (Version None)
Quarter: 2006Q4

REPORT INFORMATION
  Report Type: 
  Country: None (occurrence: None)
  Receive Date: 20060918
  Receipt Date: 20060307
  Transmission Date: 20070319
  Serious: Yes (Other)
  Sender: FDA-Public Use
  Company Number: US-JNJFOC-20060204612

PATIENT
  Age: 42 Year
  Sex: Male
  Weight: 135.1719 kg

DRUGS (2)
  1. TOPAMAX [Suspect]
     Indication: EPILEPSY
     Dosage: 300 MG, IN 1 DAY, ORAL
     Route: 048
     Dates: start: 20000101, end: 20060301
  2. KEPRA (UNSPECIFIED) LEVETIRACETAM [Concomitant]

REACTIONS (7)
  - AGGRESSION [None]
  - CONVULSION [None]
  - FEELING ABNORMAL [None]
  - MENTAL STATUS CHANGES [None]
  - SUICIDAL IDEATION [None]
  - VOMITING [None]
  - WEIGHT DECREASED [None]
